FAERS Safety Report 6977861-5 (Version None)
Quarter: 2010Q3

REPORT INFORMATION
  Report Type: 
  Country: None (occurrence: None)
  Receive Date: 20100913
  Receipt Date: 20100901
  Transmission Date: 20110219
  Serious: No
  Sender: FDA-Public Use
  Company Number: 2010BI003626

PATIENT
  Age: 45 Year
  Sex: Female

DRUGS (3)
  1. TYSABRI [Suspect]
     Indication: MULTIPLE SCLEROSIS
     Route: 042
     Dates: start: 20050113, end: 20050101
  2. TYSABRI [Suspect]
     Route: 042
     Dates: start: 20061108
  3. AVONEX [Concomitant]
     Route: 030
     Dates: start: 20020221

REACTIONS (7)
  - AMNESIA [None]
  - BACK PAIN [None]
  - DEHYDRATION [None]
  - MOBILITY DECREASED [None]
  - MOVEMENT DISORDER [None]
  - MULTIPLE SCLEROSIS RELAPSE [None]
  - VOMITING [None]
